FAERS Safety Report 8047806-8 (Version None)
Quarter: 2012Q1

REPORT INFORMATION
  Report Type: 
  Country: None (occurrence: None)
  Receive Date: 20120116
  Receipt Date: 20120116
  Transmission Date: 20120608
  Serious: Yes (Death)
  Sender: FDA-Public Use
  Company Number: PHFR2011GB04957

PATIENT
  Sex: Male
  Weight: 171.3 kg

DRUGS (3)
  1. TOLTERODINE TARTRATE [Concomitant]
     Indication: INCONTINENCE
     Dosage: 2 MG, DAILY
     Route: 048
  2. CLOZARIL [Suspect]
     Indication: SCHIZOPHRENIA
     Dosage: 375 MG, DAILY
     Route: 048
     Dates: start: 20110331
  3. VALPROATE SODIUM [Concomitant]
     Indication: CONVULSION
     Dosage: 500 MG, DAILY
     Route: 048
     Dates: start: 20110606

REACTIONS (3)
  - BLOOD TRIGLYCERIDES INCREASED [None]
  - CONGESTIVE CARDIOMYOPATHY [None]
  - WEIGHT INCREASED [None]
